FAERS Safety Report 10908451 (Version 1)
Quarter: 2015Q1

REPORT INFORMATION
  Report Type: Spontaneous
  Country: US (occurrence: US)
  Receive Date: 20150312
  Receipt Date: 20150312
  Transmission Date: 20150721
  Serious: No
  Sender: FDA-Public Use
  Company Number: US-SHIRE-US201502094

PATIENT
  Age: 35 Year
  Sex: Male
  Weight: 108.84 kg

DRUGS (2)
  1. VYVANSE [Suspect]
     Active Substance: LISDEXAMFETAMINE DIMESYLATE
     Indication: ATTENTION DEFICIT/HYPERACTIVITY DISORDER
     Dosage: 40 MG, 1X/DAY:QD
     Route: 048
     Dates: start: 201207
  2. VYVANSE [Suspect]
     Active Substance: LISDEXAMFETAMINE DIMESYLATE
     Dosage: 50 MG, 1X/DAY:QD
     Route: 048
     Dates: start: 20150302, end: 20150305

REACTIONS (12)
  - Laboratory test abnormal [Recovered/Resolved]
  - Fear [Not Recovered/Not Resolved]
  - Diarrhoea [Recovered/Resolved]
  - Dehydration [Recovered/Resolved]
  - Medical diet [Not Recovered/Not Resolved]
  - Decreased appetite [Recovered/Resolved]
  - Chest pain [Not Recovered/Not Resolved]
  - Polydipsia [Not Recovered/Not Resolved]
  - Adverse event [Recovered/Resolved]
  - Cardiac disorder [Not Recovered/Not Resolved]
  - Drug effect decreased [Recovered/Resolved]
  - Abdominal pain upper [Not Recovered/Not Resolved]

NARRATIVE: CASE EVENT DATE: 201207
